FAERS Safety Report 13435974 (Version 8)
Quarter: 2018Q2

REPORT INFORMATION
  Report Type: Report from Study
  Country: IT (occurrence: IT)
  Receive Date: 20170413
  Receipt Date: 20180605
  Transmission Date: 20180711
  Serious: Yes (Other)
  Sender: FDA-Public Use
  Company Number: IT-PFIZER INC-2017143817

PATIENT
  Age: 76 Year
  Sex: Female

DRUGS (3)
  1. NITROGLYCERIN. [Suspect]
     Active Substance: NITROGLYCERIN
     Dosage: 1 DF, QD
     Route: 062
  2. ELIQUIS [Concomitant]
     Active Substance: APIXABAN
     Dosage: 5MG FILM-COATED TABLET, 2 DOSAGE UNITS
     Route: 048
  3. SOTALOLO [Concomitant]
     Dosage: UNK

REACTIONS (8)
  - Hypertension [Unknown]
  - Vertigo [Unknown]
  - Vomiting [Unknown]
  - Malaise [Unknown]
  - Drug ineffective [Unknown]
  - Headache [Unknown]
  - Depressed level of consciousness [Unknown]
  - Condition aggravated [Unknown]

NARRATIVE: CASE EVENT DATE: 20170202
